FAERS Safety Report 21088336 (Version 1)
Quarter: 2022Q3

REPORT INFORMATION
  Report Type: Spontaneous
  Country: US (occurrence: None)
  Receive Date: 20220715
  Receipt Date: 20220715
  Transmission Date: 20221027
  Serious: No
  Sender: FDA-Public Use
  Company Number: None

PATIENT
  Age: 70 Year
  Sex: Female
  Weight: 64.3 kg

DRUGS (2)
  1. CARBOPLATIN [Suspect]
     Active Substance: CARBOPLATIN
     Dates: end: 20220531
  2. PEMETREXED [Suspect]
     Active Substance: PEMETREXED
     Dates: end: 20220531

REACTIONS (1)
  - Anaemia [None]

NARRATIVE: CASE EVENT DATE: 20220615
